FAERS Safety Report 5399944-6 (Version None)
Quarter: 2007Q3

REPORT INFORMATION
  Report Type: 
  Country: None (occurrence: None)
  Receive Date: 20070730
  Receipt Date: 20070427
  Transmission Date: 20080115
  Serious: Yes (Other)
  Sender: FDA-Public Use
  Company Number: TH-JNJFOC-20070406293

PATIENT
  Sex: Male

DRUGS (7)
  1. TMC114 [Suspect]
     Route: 048
  2. TMC114 [Suspect]
     Indication: HIV INFECTION
     Route: 048
  3. RITONAVIR [Suspect]
     Indication: HIV INFECTION
     Route: 048
  4. INDINAVIR [Concomitant]
     Indication: HIV INFECTION
     Route: 048
  5. FLUCONAZOLE [Concomitant]
     Indication: FUNGAL INFECTION
     Route: 048
  6. CYPROHEPTADINE HCL [Concomitant]
     Route: 048
  7. VITACAP [Concomitant]
     Indication: VITAMIN SUPPLEMENTATION
     Route: 048

REACTIONS (1)
  - HEPATIC ENZYME INCREASED [None]
